FAERS Safety Report 11329100 (Version 3)
Quarter: 2016Q1

REPORT INFORMATION
  Report Type: Report from Study
  Country: US (occurrence: US)
  Receive Date: 20150803
  Receipt Date: 20160317
  Transmission Date: 20160525
  Serious: No
  Sender: FDA-Public Use
  Company Number: PHEH2015US014734

PATIENT
  Sex: Female
  Weight: 80.2 kg

DRUGS (1)
  1. GILENYA [Suspect]
     Active Substance: FINGOLIMOD HYDROCHLORIDE
     Indication: MULTIPLE SCLEROSIS
     Dosage: 0.5 MG, QD
     Route: 048
     Dates: start: 20141013

REACTIONS (3)
  - Blood alkaline phosphatase increased [Unknown]
  - Periorbital oedema [Unknown]
  - Alanine aminotransferase increased [Unknown]
